FAERS Safety Report 8953505 (Version 1)
Quarter: 2012Q4

REPORT INFORMATION
  Report Type: 
  Country: JP (occurrence: JP)
  Receive Date: 20121206
  Receipt Date: 20121206
  Transmission Date: 20130627
  Serious: Yes (Other)
  Sender: FDA-Public Use
  Company Number: JP-GLAXOSMITHKLINE-B0850395A

PATIENT
  Age: 65 Year
  Sex: Female

DRUGS (1)
  1. NOGITECAN HYDROCHLORIDE [Suspect]
     Indication: OVARIAN CANCER RECURRENT
     Route: 042

REACTIONS (4)
  - Thrombocytosis [Unknown]
  - Renal impairment [Unknown]
  - Neutrophil count decreased [Unknown]
  - Anaemia [Unknown]
